FAERS Safety Report 16944240 (Version 1)
Quarter: 2019Q4

REPORT INFORMATION
  Report Type: Spontaneous
  Country: US (occurrence: US)
  Receive Date: 20190829
  Receipt Date: 20190829
  Transmission Date: 20200122
  Serious: Yes (Hospitalization)
  Sender: FDA-Public Use
  Company Number: None

PATIENT
  Age: 22 Year
  Sex: Female
  Weight: 52.3 kg

DRUGS (2)
  1. REMICADE [Suspect]
     Active Substance: INFLIXIMAB
     Route: 042
  2. INFLIXIMAB [Suspect]
     Active Substance: INFLIXIMAB
     Dosage: ?          OTHER DOSE:3 MG/KG;?
     Route: 042

REACTIONS (10)
  - Tachycardia [None]
  - Cough [None]
  - Immunosuppression [None]
  - Pleuritic pain [None]
  - Rhinorrhoea [None]
  - Body temperature increased [None]
  - Myalgia [None]
  - Dyspnoea [None]
  - Pulmonary congestion [None]
  - Leukocytosis [None]

NARRATIVE: CASE EVENT DATE: 20190620
